FAERS Safety Report 16256807 (Version 2)
Quarter: 2019Q4

REPORT INFORMATION
  Report Type: Spontaneous
  Country: US (occurrence: US)
  Receive Date: 20190430
  Receipt Date: 20191115
  Transmission Date: 20200122
  Serious: No
  Sender: FDA-Public Use
  Company Number: US-SUNOVION-2019SUN001693

PATIENT

DRUGS (1)
  1. LATUDA [Suspect]
     Active Substance: LURASIDONE HYDROCHLORIDE
     Dosage: UNK
     Route: 048

REACTIONS (6)
  - Akathisia [Unknown]
  - Restlessness [Unknown]
  - Pain in extremity [Unknown]
  - Gait disturbance [Unknown]
  - Anxiety [Unknown]
  - Tremor [Unknown]
